FAERS Safety Report 8227419-5 (Version None)
Quarter: 2012Q1

REPORT INFORMATION
  Report Type: 
  Country: None (occurrence: None)
  Receive Date: 20120322
  Receipt Date: 20120309
  Transmission Date: 20120608
  Serious: Yes (Death)
  Sender: FDA-Public Use
  Company Number: DE-FRI-1000020072

PATIENT
  Sex: Male
  Weight: 76 kg

DRUGS (9)
  1. SPIRIVA [Concomitant]
     Indication: CHRONIC OBSTRUCTIVE PULMONARY DISEASE
     Route: 055
     Dates: start: 20051011
  2. ASPIRIN [Concomitant]
     Indication: TRANSIENT ISCHAEMIC ATTACK
     Dates: start: 20030131
  3. ROFLUMILAST [Suspect]
     Indication: CHRONIC OBSTRUCTIVE PULMONARY DISEASE
     Dosage: 1 DOSAGE FORMS
     Route: 048
     Dates: start: 20110207
  4. THEOPHYLLINE [Concomitant]
     Indication: CHRONIC OBSTRUCTIVE PULMONARY DISEASE
     Route: 048
     Dates: start: 20000525, end: 20110101
  5. TORASEMIDE [Concomitant]
     Indication: CARDIAC FAILURE
     Route: 048
     Dates: end: 20110101
  6. LEVOTHYROXINE SODIUM [Concomitant]
     Indication: HYPOTHYROIDISM
     Route: 048
     Dates: start: 20000830, end: 20110101
  7. RAMIPRIL [Concomitant]
     Indication: HYPERTENSION
     Dosage: 5/25MG, DAILY
     Route: 048
     Dates: start: 20040101, end: 20110101
  8. OXYGEN [Concomitant]
     Dates: start: 20070703
  9. SYMBICORT [Concomitant]
     Indication: CHRONIC OBSTRUCTIVE PULMONARY DISEASE
     Dosage: 320/9 MCG DAILY
     Route: 055
     Dates: start: 20061212

REACTIONS (3)
  - OEDEMA PERIPHERAL [None]
  - CARDIAC FAILURE [None]
  - DEATH [None]
